FAERS Safety Report 21191991 (Version 1)
Quarter: 2022Q3

REPORT INFORMATION
  Report Type: Spontaneous
  Country: CN (occurrence: CN)
  Receive Date: 20220809
  Receipt Date: 20220809
  Transmission Date: 20221027
  Serious: Yes (Death)
  Sender: FDA-Public Use
  Company Number: CN-MLMSERVICE-20220728-3701652-1

PATIENT
  Age: 2 Month
  Sex: Male

DRUGS (12)
  1. DEXAMETHASONE [Suspect]
     Active Substance: DEXAMETHASONE
     Indication: Anti-infective therapy
     Route: 065
     Dates: start: 202105, end: 202105
  2. PREDNISONE ACETATE [Suspect]
     Active Substance: PREDNISONE ACETATE
     Indication: Anti-infective therapy
     Route: 065
     Dates: start: 202105, end: 202105
  3. METHYLPREDNISOLONE SODIUM SUCCINATE [Suspect]
     Active Substance: METHYLPREDNISOLONE SODIUM SUCCINATE
     Indication: Dyspnoea
     Route: 065
     Dates: start: 202106, end: 20210610
  4. AZITHROMYCIN [Concomitant]
     Active Substance: AZITHROMYCIN
     Indication: Anti-infective therapy
     Dates: start: 202106, end: 202106
  5. GANCICLOVIR [Concomitant]
     Active Substance: GANCICLOVIR
     Indication: Antiviral treatment
     Dates: start: 202104, end: 202105
  6. CEFOTAXIME [Concomitant]
     Active Substance: CEFOTAXIME SODIUM
     Indication: Anti-infective therapy
     Dates: start: 202104, end: 202105
  7. CEFTRIAXONE SODIUM [Concomitant]
     Active Substance: CEFTRIAXONE SODIUM
     Indication: Anti-infective therapy
     Dates: start: 202105, end: 202105
  8. CEFTRIAXONE SODIUM [Concomitant]
     Active Substance: CEFTRIAXONE SODIUM
     Dates: start: 202105, end: 202105
  9. IMIPENEM [Concomitant]
     Active Substance: IMIPENEM
     Indication: Anti-infective therapy
     Dates: start: 20210429, end: 202105
  10. CEFIXIME [Concomitant]
     Active Substance: CEFIXIME
     Indication: Anti-infective therapy
     Dates: start: 202106, end: 202106
  11. MEROPENEM [Concomitant]
     Active Substance: MEROPENEM
     Indication: Anti-infective therapy
     Dates: start: 202105, end: 202105
  12. CEFUROXIME SODIUM [Concomitant]
     Active Substance: CEFUROXIME SODIUM
     Indication: Anti-infective therapy

REACTIONS (2)
  - Pneumocystis jirovecii pneumonia [Fatal]
  - Pneumonia cytomegaloviral [Fatal]

NARRATIVE: CASE EVENT DATE: 20210101
